FAERS Safety Report 14980672 (Version 1)
Quarter: 2018Q2

REPORT INFORMATION
  Report Type: Spontaneous
  Country: US (occurrence: US)
  Receive Date: 20180606
  Receipt Date: 20180606
  Transmission Date: 20180711
  Serious: No
  Sender: FDA-Public Use
  Company Number: US-PERRIGO-18US002627

PATIENT
  Age: 75 Year
  Sex: Female

DRUGS (5)
  1. RANITIDINE HYDROCHLORIDE. [Suspect]
     Active Substance: RANITIDINE HYDROCHLORIDE
     Indication: GASTROOESOPHAGEAL REFLUX DISEASE
     Dosage: 150 MG, QD, PRN
     Route: 048
     Dates: end: 20180304
  2. BENADRYL                           /00945501/ [Concomitant]
     Active Substance: ACRIVASTINE
     Indication: EXPOSURE TO ALLERGEN
     Dosage: UNKNOWN, UNKNOWN
     Route: 048
     Dates: start: 201803, end: 201803
  3. MUCINEX [Concomitant]
     Active Substance: GUAIFENESIN
     Indication: INFLUENZA
     Dosage: UNKNOWN, UNKNOWN
     Route: 048
     Dates: start: 2018, end: 2018
  4. DOXYCYCLINE. [Concomitant]
     Active Substance: DOXYCYCLINE
     Indication: PROPHYLAXIS
     Dosage: UNKNOWN, FOR 10 DAYS
     Route: 048
     Dates: start: 201802, end: 201803
  5. TYLENOL [Concomitant]
     Active Substance: ACETAMINOPHEN
     Indication: ARTHRITIS
     Dosage: 500 MG, UNKNOWN
     Route: 048
     Dates: start: 2013

REACTIONS (2)
  - Pain [Recovered/Resolved]
  - Somnolence [Recovered/Resolved]

NARRATIVE: CASE EVENT DATE: 2017
